FAERS Safety Report 4280159-X (Version None)
Quarter: 2004Q1

REPORT INFORMATION
  Report Type: 
  Country: None (occurrence: None)
  Receive Date: 20040126
  Receipt Date: 20040112
  Transmission Date: 20041129
  Serious: No
  Sender: FDA-Public Use
  Company Number: 2004PK00067

PATIENT
  Sex: Female

DRUGS (1)
  1. PROPOFOL [Suspect]
     Indication: ANAESTHESIA
     Dates: start: 20031128

REACTIONS (4)
  - ASTHMA [None]
  - HYPERSENSITIVITY [None]
  - HYPOTENSION [None]
  - TACHYCARDIA [None]
